FAERS Safety Report 6529696-5 (Version None)
Quarter: 2010Q1

REPORT INFORMATION
  Report Type: 
  Country: None (occurrence: None)
  Receive Date: 20100107
  Receipt Date: 20091228
  Transmission Date: 20100710
  Serious: Yes (Hospitalization)
  Sender: FDA-Public Use
  Company Number: US-ELI_LILLY_AND_COMPANY-US200911005314

PATIENT
  Sex: Female
  Weight: 65.306 kg

DRUGS (3)
  1. CYMBALTA [Suspect]
     Indication: FIBROMYALGIA
     Dosage: 60 MG, UNK
     Dates: start: 20090701, end: 20090903
  2. XANAX [Concomitant]
     Dosage: UNK, AS NEEDED
  3. PREVACID [Concomitant]

REACTIONS (1)
  - PANCREATITIS [None]
